FAERS Safety Report 9969022 (Version 1)
Quarter: 2014Q1

REPORT INFORMATION
  Report Type: Report from Study
  Country: US (occurrence: US)
  Receive Date: 20140306
  Receipt Date: 20140306
  Transmission Date: 20141002
  Serious: No
  Sender: FDA-Public Use
  Company Number: US-ABBVIE-13P-163-1144147-00

PATIENT
  Age: 52 Year
  Sex: Female

DRUGS (5)
  1. HUMIRA [Suspect]
     Indication: CROHN^S DISEASE
     Dates: start: 20130806, end: 20130806
  2. HUMIRA [Suspect]
     Dates: start: 20130820, end: 20130820
  3. HUMIRA [Suspect]
     Dates: start: 20130904
  4. IMURAN [Concomitant]
     Indication: PRODUCT USED FOR UNKNOWN INDICATION
  5. HYDROCHLOROTHIAZIDE [Concomitant]
     Indication: HYPERTENSION

REACTIONS (3)
  - Device malfunction [Unknown]
  - Inappropriate schedule of drug administration [Unknown]
  - Injection site haemorrhage [Recovered/Resolved]
